FAERS Safety Report 14554599 (Version 1)
Quarter: 2018Q1

REPORT INFORMATION
  Report Type: Report from Study
  Country: HU (occurrence: HU)
  Receive Date: 20180220
  Receipt Date: 20180220
  Transmission Date: 20180509
  Serious: Yes (Other)
  Sender: FDA-Public Use
  Company Number: HU-TEVA-2018-HU-857082

PATIENT
  Age: 79 Year
  Sex: Female

DRUGS (5)
  1. 5-FLUOROURACIL [Concomitant]
     Active Substance: FLUOROURACIL
     Indication: PRODUCT USED FOR UNKNOWN INDICATION
     Route: 065
  2. AFINITOR [Suspect]
     Active Substance: EVEROLIMUS
     Indication: PRODUCT USED FOR UNKNOWN INDICATION
     Route: 065
  3. PACLITAXEL. [Suspect]
     Active Substance: PACLITAXEL
     Indication: BREAST CANCER
     Dosage: Q2W (2 WEEKLY)
     Route: 065
     Dates: start: 201609, end: 201612
  4. LETROZOLE. [Suspect]
     Active Substance: LETROZOLE
     Indication: BREAST CANCER
     Dosage: UNK
     Route: 065
     Dates: start: 201606
  5. ZOLEDRONIC ACID [Suspect]
     Active Substance: ZOLEDRONIC ACID
     Indication: METASTASES TO BONE
     Dosage: UNK
     Route: 065
     Dates: start: 201606

REACTIONS (6)
  - Dyspnoea [Unknown]
  - Pleural effusion [Recovering/Resolving]
  - Malignant neoplasm progression [Recovering/Resolving]
  - Metastases to bone [Recovering/Resolving]
  - Weight decreased [Unknown]
  - Pleural thickening [Recovering/Resolving]

NARRATIVE: CASE EVENT DATE: 2016
